FAERS Safety Report 9327229 (Version 2)
Quarter: 2013Q4

REPORT INFORMATION
  Report Type: Spontaneous
  Country: ES (occurrence: ES)
  Receive Date: 20130604
  Receipt Date: 20131104
  Transmission Date: 20140711
  Serious: Yes (Hospitalization)
  Sender: FDA-Public Use
  Company Number: PHHY2013ES054028

PATIENT
  Age: 35 Year
  Sex: Female

DRUGS (3)
  1. TRILEPTAL [Suspect]
     Indication: SCHIZOPHRENIA
     Dosage: 900 MG (300 MG EVERY 8 HOUR)
     Route: 048
     Dates: start: 20121107, end: 20121202
  2. HYDROCHLOROTHIAZIDE [Suspect]
     Indication: HYPERTENSION
     Dosage: 12.5 MG, QD
     Route: 048
     Dates: start: 20121019, end: 20121125
  3. ENALAPRIL [Suspect]
     Indication: HYPERTENSION
     Dosage: 20 MG, QD
     Route: 048
     Dates: start: 20121019, end: 20121125

REACTIONS (1)
  - Drug reaction with eosinophilia and systemic symptoms [Recovered/Resolved]
